FAERS Safety Report 17758242 (Version 1)
Quarter: 2020Q2

REPORT INFORMATION
  Report Type: Report from Study
  Country: None (occurrence: US)
  Receive Date: 20200507
  Receipt Date: 20200507
  Transmission Date: 20200714
  Serious: Yes (Other)
  Sender: FDA-Public Use
  Company Number: US-ABBVIE-16K-163-3035974-00

PATIENT
  Age: 58 Year
  Sex: Male

DRUGS (7)
  1. IMBRUVICA [Suspect]
     Active Substance: IBRUTINIB
     Dosage: 280 MG, QOD
     Route: 048
     Dates: start: 20170601
  2. IMBRUVICA [Suspect]
     Active Substance: IBRUTINIB
     Indication: CHRONIC LYMPHOCYTIC LEUKAEMIA
     Dosage: 140 MG, EVERY OTHER DAY
     Route: 048
     Dates: start: 20140929, end: 2016
  3. IMBRUVICA [Suspect]
     Active Substance: IBRUTINIB
     Dosage: UNK
     Route: 048
     Dates: start: 20140929, end: 20170531
  4. IMBRUVICA [Suspect]
     Active Substance: IBRUTINIB
     Dosage: 140MG DAILY 4 TIMES PER WEEK
     Route: 048
  5. IMBRUVICA [Suspect]
     Active Substance: IBRUTINIB
     Dosage: 3 TIMES PER WEEK
     Route: 048
  6. IMBRUVICA [Suspect]
     Active Substance: IBRUTINIB
     Dosage: 140 MG, EVERY OTHER DAY
     Route: 048
     Dates: start: 20170601
  7. IMBRUVICA [Suspect]
     Active Substance: IBRUTINIB
     Dosage: 140 MG, EVERY OTHER DAY
     Route: 048
     Dates: start: 2016

REACTIONS (4)
  - Deep vein thrombosis [Recovered/Resolved]
  - Platelet count abnormal [Not Recovered/Not Resolved]
  - Gout [Unknown]
  - Incorrect dose administered [Not Recovered/Not Resolved]

NARRATIVE: CASE EVENT DATE: 20140929
